FAERS Safety Report 16423223 (Version 1)
Quarter: 2019Q2

REPORT INFORMATION
  Report Type: Spontaneous
  Country: FR (occurrence: FR)
  Receive Date: 20190612
  Receipt Date: 20190612
  Transmission Date: 20190711
  Serious: Yes (Death)
  Sender: FDA-Public Use
  Company Number: FR-009507513-1906FRA003392

PATIENT
  Age: 52 Year
  Sex: Female

DRUGS (12)
  1. MIRTAZAPINE. [Suspect]
     Active Substance: MIRTAZAPINE
     Indication: DEPRESSION
     Dosage: 30 MILLIGRAM, QD
     Route: 048
     Dates: start: 20180928
  2. RISPERDAL [Suspect]
     Active Substance: RISPERIDONE
     Indication: BIPOLAR DISORDER
     Dosage: 12 MILLIGRAM, QD
     Route: 048
     Dates: start: 20180928
  3. HALDOL [Suspect]
     Active Substance: HALOPERIDOL
     Indication: BIPOLAR DISORDER
     Dosage: 20 MILLIGRAM, QD (CONCENTRATION: 2MG/ML,)
     Route: 048
     Dates: start: 20180928
  4. X-PREP [Concomitant]
     Active Substance: SENNOSIDES
     Dosage: ORAL POWDER IN SACHET
     Route: 048
     Dates: start: 20190327, end: 20190328
  5. DUPHALAC [Concomitant]
     Active Substance: LACTULOSE
     Route: 048
     Dates: start: 20190320, end: 20190328
  6. LANSOYL [Concomitant]
     Active Substance: MINERAL OIL
     Route: 048
     Dates: start: 20190320, end: 20190328
  7. PRAZEPAM [Suspect]
     Active Substance: PRAZEPAM
     Indication: ANXIETY
     Dosage: 15 MILLIGRAM, QD
     Route: 048
     Dates: start: 20180928
  8. ATROPINE. [Concomitant]
     Active Substance: ATROPINE
     Dosage: 4 GTT DROPS, QD
     Route: 060
     Dates: start: 20190315, end: 20190328
  9. KETOCONAZOLE. [Concomitant]
     Active Substance: KETOCONAZOLE
     Route: 003
     Dates: start: 20190316, end: 20190328
  10. EDUCTYL [Concomitant]
     Active Substance: POTASSIUM BITARTRATE\SODIUM BICARBONATE
     Route: 054
     Dates: start: 20181026, end: 20190320
  11. THERALENE [Suspect]
     Active Substance: TRIMEPRAZINE
     Indication: INSOMNIA
     Dosage: 40 GTT DROPS, QD
     Route: 048
     Dates: start: 20180928
  12. LOXAPAC (LOXAPINE SUCCINATE) [Suspect]
     Active Substance: LOXAPINE SUCCINATE
     Indication: PSYCHOTIC DISORDER
     Dosage: 425 MILLIGRAM, QD
     Route: 048
     Dates: start: 20181012

REACTIONS (1)
  - Intestinal obstruction [Fatal]

NARRATIVE: CASE EVENT DATE: 20190320
